FAERS Safety Report 25941139 (Version 1)
Quarter: 2025Q4

REPORT INFORMATION
  Report Type: Report from Study
  Country: US (occurrence: US)
  Receive Date: 20251020
  Receipt Date: 20251020
  Transmission Date: 20260117
  Serious: Yes (Other)
  Sender: ROCHE
  Company Number: US-ROCHE-10000412988

PATIENT
  Age: 34 Year
  Sex: Female

DRUGS (1)
  1. XOLAIR PFS [Suspect]
     Active Substance: OMALIZUMAB
     Indication: Chronic spontaneous urticaria
     Dosage: INJECT THE CONTENTS OF 1 DEVICE UNDER THE SKIN EVERY 4 WEEKS (TOTAL: 300MG EVERY 4 WEEKS)
     Route: 058

REACTIONS (1)
  - Anaphylactic shock [Unknown]
